FAERS Safety Report 9691009 (Version 1)
Quarter: 2013Q4

REPORT INFORMATION
  Report Type: Spontaneous
  Country: US (occurrence: None)
  Receive Date: 20131114
  Receipt Date: 20131114
  Transmission Date: 20140711
  Serious: Yes (Death)
  Sender: FDA-Public Use
  Company Number: None

PATIENT
  Age: 78 Year
  Sex: Female
  Weight: 98 kg

DRUGS (2)
  1. LOSARTAN [Suspect]
     Indication: HYPERTENSION
     Route: 048
  2. POTASSIUM CHLORIDE [Suspect]
     Indication: DRUG THERAPY
     Dosage: 1 TAB QD ORAL
     Route: 048

REACTIONS (4)
  - Cardiac arrest [None]
  - Multi-organ failure [None]
  - Blood potassium increased [None]
  - Blood creatinine increased [None]
